FAERS Safety Report 9802965 (Version 1)
Quarter: 2014Q1

REPORT INFORMATION
  Report Type: Spontaneous
  Country: US (occurrence: None)
  Receive Date: 20140106
  Receipt Date: 20140106
  Transmission Date: 20141002
  Serious: Yes (Other)
  Sender: FDA-Public Use
  Company Number: None

PATIENT
  Age: 42 Year
  Sex: Female
  Weight: 85.5 kg

DRUGS (2)
  1. CYTARABINE [Suspect]
     Dates: end: 20131215
  2. IDARUBICIN [Suspect]
     Dates: end: 20131213

REACTIONS (8)
  - Hypotension [None]
  - Fluid overload [None]
  - Pneumonia [None]
  - Aspiration [None]
  - Posterior reversible encephalopathy syndrome [None]
  - Postictal paralysis [None]
  - Bone marrow failure [None]
  - Chest X-ray abnormal [None]
